FAERS Safety Report 10202979 (Version 1)
Quarter: 2014Q2

REPORT INFORMATION
  Report Type: Spontaneous
  Country: US (occurrence: US)
  Receive Date: 20140528
  Receipt Date: 20140528
  Transmission Date: 20141212
  Serious: Yes (Other)
  Sender: FDA-Public Use
  Company Number: PHHY2014US063336

PATIENT
  Age: 62 Year
  Sex: Female

DRUGS (7)
  1. ZOLEDRONATE [Suspect]
     Indication: METASTASES TO SPINE
  2. CABOZANTINIB [Suspect]
     Indication: METASTATIC NEOPLASM
     Dosage: 140 MG, DAILY
  3. CABOZANTINIB [Suspect]
     Dosage: 20 MG, DAILY
  4. CABOZANTINIB [Suspect]
     Dosage: 60 MG, DAILY
  5. DENOSUMAB [Suspect]
     Indication: METASTASES TO SPINE
  6. DACARBAZINE [Concomitant]
     Dosage: 60 MG/M2, UNK
  7. 5-FU [Concomitant]

REACTIONS (6)
  - Osteonecrosis of jaw [Unknown]
  - Metastases to spine [Unknown]
  - Malignant neoplasm progression [Unknown]
  - Metastases to bone [Unknown]
  - Blood calcitonin increased [Recovered/Resolved]
  - Diarrhoea [Unknown]
